FAERS Safety Report 25078051 (Version 1)
Quarter: 2025Q1

REPORT INFORMATION
  Report Type: Spontaneous
  Country: ZA (occurrence: ZA)
  Receive Date: 20250314
  Receipt Date: 20250314
  Transmission Date: 20250409
  Serious: Yes (Other)
  Sender: SCIEGEN PHARMACEUTICALS INC
  Company Number: ZA-SCIEGENP-2025SCLIT00039

PATIENT
  Age: 30 Year
  Sex: Male

DRUGS (2)
  1. LAMOTRIGINE [Suspect]
     Active Substance: LAMOTRIGINE
     Indication: Depression
     Route: 065
  2. Butriopine [Concomitant]
     Indication: Asthma
     Route: 065

REACTIONS (1)
  - Restrictive cardiomyopathy [Recovering/Resolving]
